FAERS Safety Report 8225734-2 (Version None)
Quarter: 2012Q1

REPORT INFORMATION
  Report Type: 
  Country: None (occurrence: None)
  Receive Date: 20120321
  Receipt Date: 20120313
  Transmission Date: 20120608
  Serious: Yes (Hospitalization)
  Sender: FDA-Public Use
  Company Number: AU-B.I. PHARMACEUTICALS,INC./RIDGEFIELD-2012-AU-00527AU

PATIENT
  Sex: Female

DRUGS (4)
  1. PRADAXA [Suspect]
     Indication: ATRIAL FIBRILLATION
     Dates: start: 20110101, end: 20120101
  2. SOTALOL HCL [Concomitant]
     Indication: ATRIAL FLUTTER
  3. IRBESARTAN [Concomitant]
  4. PHYSIOTENS [Concomitant]

REACTIONS (5)
  - ATRIAL FLUTTER [None]
  - ABDOMINAL PAIN UPPER [None]
  - HEADACHE [None]
  - PALPITATIONS [None]
  - MALAISE [None]
